FAERS Safety Report 17577488 (Version 3)
Quarter: 2020Q1

REPORT INFORMATION
  Report Type: Spontaneous
  Country: US (occurrence: US)
  Receive Date: 20200324
  Receipt Date: 20200331
  Transmission Date: 20200409
  Serious: Yes (Hospitalization, Other)
  Sender: FDA-Public Use
  Company Number: US-ASTRAZENECA-2020SE40576

PATIENT
  Sex: Male

DRUGS (15)
  1. NORVASC [Concomitant]
     Active Substance: AMLODIPINE BESYLATE
     Indication: MYOCARDIAL INFARCTION
     Route: 048
     Dates: start: 201809
  2. ALLOPURINAL [Concomitant]
     Active Substance: ALLOPURINOL
     Indication: BLOOD URIC ACID INCREASED
     Route: 048
     Dates: start: 1980
  3. NOVOLOG [Concomitant]
     Active Substance: INSULIN ASPART
     Indication: TYPE 2 DIABETES MELLITUS
     Dosage: THREE TIMES A DAY (5 TO 8 UNITS; LUNCH IS 10 UNITS AND DINNER IS 12 UNITS)
     Route: 058
  4. LISINOPRIL. [Concomitant]
     Active Substance: LISINOPRIL
     Route: 048
  5. FLOMAX [Concomitant]
     Active Substance: TAMSULOSIN HYDROCHLORIDE
     Indication: PROSTATOMEGALY
     Route: 048
     Dates: start: 2008
  6. ELIQUIS [Concomitant]
     Active Substance: APIXABAN
     Indication: ANTICOAGULANT THERAPY
     Route: 048
     Dates: start: 2015
  7. BYETTA [Suspect]
     Active Substance: EXENATIDE
     Indication: TYPE 2 DIABETES MELLITUS
     Dosage: TWO TIMES A DAY
     Route: 058
  8. PLAVIX [Concomitant]
     Active Substance: CLOPIDOGREL BISULFATE
     Indication: ANTICOAGULANT THERAPY
     Route: 048
     Dates: start: 2019
  9. LIPITOR [Concomitant]
     Active Substance: ATORVASTATIN CALCIUM
     Indication: MYOCARDIAL INFARCTION
     Route: 048
     Dates: start: 201809
  10. COREG [Concomitant]
     Active Substance: CARVEDILOL
     Indication: CARDIAC DISORDER
     Route: 048
     Dates: start: 201809
  11. PROSCAR [Concomitant]
     Active Substance: FINASTERIDE
     Indication: PROSTATOMEGALY
     Route: 048
  12. CIPRODEX [Concomitant]
     Active Substance: CIPROFLOXACIN HYDROCHLORIDE\DEXAMETHASONE
     Indication: EAR INFECTION
     Dosage: 2 GTTS ONCE A WEEK
     Route: 001
  13. BYDUREON BCISE [Suspect]
     Active Substance: EXENATIDE
     Indication: TYPE 2 DIABETES MELLITUS
     Route: 058
  14. BYDUREON [Suspect]
     Active Substance: EXENATIDE
     Indication: TYPE 2 DIABETES MELLITUS
     Route: 058
     Dates: start: 2012
  15. LANTUS [Concomitant]
     Active Substance: INSULIN GLARGINE
     Indication: TYPE 2 DIABETES MELLITUS
     Dosage: 18 TO 20 UNITS AT NIGHT
     Route: 058

REACTIONS (14)
  - Atrial fibrillation [Unknown]
  - Large intestinal haemorrhage [Recovered/Resolved]
  - Device issue [Unknown]
  - Incorrect dose administered [Unknown]
  - Product prescribing issue [Unknown]
  - Drug ineffective [Not Recovered/Not Resolved]
  - Device leakage [Unknown]
  - Thyroid disorder [Not Recovered/Not Resolved]
  - Wrong technique in product usage process [Unknown]
  - Injection site mass [Not Recovered/Not Resolved]
  - Injection site haemorrhage [Recovered/Resolved]
  - Myocardial infarction [Unknown]
  - Pruritus [Unknown]
  - Product dose omission [Unknown]

NARRATIVE: CASE EVENT DATE: 2019
